FAERS Safety Report 6434789-7 (Version None)
Quarter: 2009Q4

REPORT INFORMATION
  Report Type: 
  Country: None (occurrence: None)
  Receive Date: 20091110
  Receipt Date: 20091029
  Transmission Date: 20100525
  Serious: Yes (Death)
  Sender: FDA-Public Use
  Company Number: JP-PFIZER INC-2009264495

PATIENT
  Age: 79 Year
  Sex: Female
  Weight: 45 kg

DRUGS (8)
  1. CAMPTOSAR [Suspect]
     Indication: RECTAL CANCER
     Dosage: 160 MG (120.3 MG/M2)
     Route: 041
     Dates: start: 20090708, end: 20090722
  2. FLUOROURACIL [Suspect]
     Indication: RECTAL CANCER
     Dosage: 425 MG (319.5 MG/M2)
     Route: 040
     Dates: start: 20090708, end: 20090722
  3. FLUOROURACIL [Suspect]
     Dosage: 2500 MG (1879.7 MG/M2)
     Route: 041
     Dates: start: 20090708, end: 20090722
  4. AVASTIN [Suspect]
     Indication: RECTAL CANCER
     Dosage: 200 MG, UNK
     Route: 041
     Dates: start: 20090708, end: 20090722
  5. KYTRIL [Concomitant]
     Indication: PREMEDICATION
     Dosage: 3 MG, UNK
     Route: 041
     Dates: start: 20090708, end: 20090722
  6. DECADRON [Concomitant]
     Indication: PREMEDICATION
     Dosage: 8 MG, UNK
     Route: 041
     Dates: start: 20090708, end: 20090722
  7. TIENAM [Concomitant]
     Indication: ANTIBIOTIC THERAPY
     Dosage: UNK
     Dates: start: 20090809, end: 20090809
  8. RED BLOOD CELLS, CONCENTRATED [Concomitant]
     Dosage: 2 IU
     Route: 041
     Dates: start: 20090731, end: 20090806

REACTIONS (3)
  - GASTROINTESTINAL HAEMORRHAGE [None]
  - NEUTROPENIA [None]
  - SEPSIS [None]
